FAERS Safety Report 22174463 (Version 3)
Quarter: 2023Q2

REPORT INFORMATION
  Report Type: Report from Study
  Country: US (occurrence: US)
  Receive Date: 20230405
  Receipt Date: 20230519
  Transmission Date: 20230722
  Serious: Yes (Other)
  Sender: FDA-Public Use
  Company Number: US-ABBVIE-4304298

PATIENT
  Age: 75 Year
  Sex: Female

DRUGS (2)
  1. IMBRUVICA [Suspect]
     Active Substance: IBRUTINIB
     Indication: Lymphoma
     Dosage: FIRST ADMIN DATE: 2023
     Route: 048
  2. IMBRUVICA [Suspect]
     Active Substance: IBRUTINIB
     Indication: Lymphoma
     Dosage: LAST ADMIN DATE:2023
     Route: 048
     Dates: start: 20230111

REACTIONS (13)
  - Pleural effusion [Unknown]
  - Vision blurred [Unknown]
  - Diarrhoea [Unknown]
  - Peripheral swelling [Unknown]
  - Dizziness [Unknown]
  - Joint swelling [Unknown]
  - Adverse drug reaction [Unknown]
  - Chylothorax [Unknown]
  - Constipation [Unknown]
  - Hepatic enzyme increased [Unknown]
  - Onychoclasis [Unknown]
  - Dry skin [Unknown]
  - Onychalgia [Unknown]

NARRATIVE: CASE EVENT DATE: 20230301
